FAERS Safety Report 5640819-2 (Version None)
Quarter: 2008Q1

REPORT INFORMATION
  Report Type: 
  Country: None (occurrence: None)
  Receive Date: 20080227
  Receipt Date: 20080215
  Transmission Date: 20080703
  Serious: Yes (Hospitalization)
  Sender: FDA-Public Use
  Company Number: JP-GENENTECH-256073

PATIENT
  Age: 72 Year
  Sex: Male

DRUGS (8)
  1. RANIBIZUMAB [Suspect]
     Indication: MACULAR DEGENERATION
     Dosage: 300 A?G, UNK
     Route: 031
     Dates: start: 20060912, end: 20080204
  2. NORVASC [Concomitant]
     Indication: DRUG USE FOR UNKNOWN INDICATION
  3. CARVEDILOL [Concomitant]
     Indication: DRUG USE FOR UNKNOWN INDICATION
  4. COVERSYL [Concomitant]
     Indication: DRUG USE FOR UNKNOWN INDICATION
  5. ZYLORIC [Concomitant]
     Indication: DRUG USE FOR UNKNOWN INDICATION
  6. WARFARIN SODIUM [Concomitant]
     Indication: DRUG USE FOR UNKNOWN INDICATION
  7. FERROMIA [Concomitant]
     Indication: DRUG USE FOR UNKNOWN INDICATION
  8. LAFUTIDINE [Concomitant]
     Indication: DRUG USE FOR UNKNOWN INDICATION

REACTIONS (2)
  - CEREBRAL INFARCTION [None]
  - COLON CANCER [None]
